FAERS Safety Report 4807984-8 (Version None)
Quarter: 2005Q4

REPORT INFORMATION
  Report Type: 
  Country: None (occurrence: None)
  Receive Date: 20051020
  Receipt Date: 20051005
  Transmission Date: 20060501
  Serious: Yes (Other)
  Sender: FDA-Public Use
  Company Number: 05-02-06472

PATIENT
  Age: 53 Year
  Sex: Male

DRUGS (4)
  1. CETUXIMAB (CETUXIMAB) [Suspect]
     Indication: SQUAMOUS CELL CARCINOMA
     Dosage: SEE IMAGE
     Route: 042
     Dates: start: 20050704, end: 20050704
  2. CETUXIMAB (CETUXIMAB) [Suspect]
     Indication: SQUAMOUS CELL CARCINOMA
     Dosage: SEE IMAGE
     Route: 042
     Dates: start: 20050711, end: 20051004
  3. CISPLATIN [Suspect]
     Indication: SQUAMOUS CELL CARCINOMA
     Dosage: 80 MG/M2 Q 3WKS I.V.
     Route: 042
     Dates: start: 20050704, end: 20051004
  4. FLUOROURACIL [Suspect]
     Indication: SQUAMOUS CELL CARCINOMA
     Dosage: 1000 MG/M2 C.I.V. OVER 4 DAYS
     Dates: start: 20050704, end: 20051004

REACTIONS (2)
  - ALANINE AMINOTRANSFERASE INCREASED [None]
  - ASPARTATE AMINOTRANSFERASE INCREASED [None]
